FAERS Safety Report 14495004 (Version 2)
Quarter: 2018Q3

REPORT INFORMATION
  Report Type: Spontaneous
  Country: CO (occurrence: CO)
  Receive Date: 20180206
  Receipt Date: 20180726
  Transmission Date: 20181010
  Serious: Yes (Other)
  Sender: FDA-Public Use
  Company Number: CO-VALIDUS PHARMACEUTICALS LLC-CO-2018VAL000279

PATIENT

DRUGS (1)
  1. ROCALTROL [Suspect]
     Active Substance: CALCITRIOL
     Indication: HYPOTHYROIDISM
     Dosage: 0.25 MG, UNK
     Route: 065

REACTIONS (2)
  - Asphyxia [Not Recovered/Not Resolved]
  - Ill-defined disorder [Not Recovered/Not Resolved]
